FAERS Safety Report 5954524-6 (Version None)
Quarter: 2008Q4

REPORT INFORMATION
  Report Type: 
  Country: None (occurrence: None)
  Receive Date: 20081117
  Receipt Date: 20081110
  Transmission Date: 20090506
  Serious: Yes (Hospitalization, Other)
  Sender: FDA-Public Use
  Company Number: US-BAYER-200831149NA

PATIENT
  Age: 59 Year
  Sex: Female
  Weight: 63 kg

DRUGS (5)
  1. AVELOX [Suspect]
     Indication: LUNG INFECTION
     Dosage: TOTAL DAILY DOSE: 400 MG  UNIT DOSE: 400 MG
     Dates: start: 20080702, end: 20080702
  2. SPIRIVA [Concomitant]
     Dates: start: 20050101
  3. FOSAMAX [Concomitant]
  4. THYROID THERAPY [Concomitant]
  5. METHIMAZOLE [Concomitant]

REACTIONS (8)
  - BACK DISORDER [None]
  - ERYTHEMA [None]
  - FALL [None]
  - HYPERSENSITIVITY [None]
  - LOSS OF CONSCIOUSNESS [None]
  - PALMAR ERYTHEMA [None]
  - PRURITUS [None]
  - PRURITUS GENERALISED [None]
